FAERS Safety Report 15736761 (Version 1)
Quarter: 2018Q4

REPORT INFORMATION
  Report Type: Spontaneous
  Country: US (occurrence: US)
  Receive Date: 20181218
  Receipt Date: 20181218
  Transmission Date: 20190205
  Serious: No
  Sender: FDA-Public Use
  Company Number: US-PERRIGO-18US000326

PATIENT
  Age: 65 Year
  Sex: Female
  Weight: 77.98 kg

DRUGS (1)
  1. BACITRACIN. [Suspect]
     Active Substance: BACITRACIN
     Indication: PROPHYLAXIS
     Dosage: SMALL AMOUNT, TID
     Route: 047
     Dates: start: 20171229, end: 20180103

REACTIONS (5)
  - Ocular hyperaemia [Recovering/Resolving]
  - Eye pruritus [Recovering/Resolving]
  - Hypersensitivity [Recovering/Resolving]
  - Off label use [Recovered/Resolved]
  - Eye swelling [Recovering/Resolving]

NARRATIVE: CASE EVENT DATE: 20171229
